FAERS Safety Report 24749467 (Version 1)
Quarter: 2024Q4

REPORT INFORMATION
  Report Type: Report from Study
  Country: CO (occurrence: CO)
  Receive Date: 20241218
  Receipt Date: 20241218
  Transmission Date: 20250114
  Serious: Yes (Death, Other)
  Sender: UCB
  Company Number: CO-UCBSA-2024065592

PATIENT
  Age: 52 Year
  Sex: Male

DRUGS (4)
  1. ROTIGOTINE [Suspect]
     Active Substance: ROTIGOTINE
     Indication: Parkinson^s disease
     Dosage: 8 MILLIGRAM, ONCE DAILY (QD)
     Route: 062
     Dates: start: 20190722, end: 20220930
  2. ROTIGOTINE [Suspect]
     Active Substance: ROTIGOTINE
     Dosage: 12 MILLIGRAM, ONCE DAILY (QD)
     Route: 062
     Dates: start: 20221001, end: 20230127
  3. ROTIGOTINE [Suspect]
     Active Substance: ROTIGOTINE
     Dosage: 16 MILLIGRAM, ONCE DAILY (QD)
     Route: 062
     Dates: start: 20231028
  4. CARBIDOPA\LEVODOPA [Concomitant]
     Active Substance: CARBIDOPA\LEVODOPA
     Indication: Product used for unknown indication
     Dosage: UNK

REACTIONS (3)
  - Death [Fatal]
  - General physical health deterioration [Unknown]
  - Off label use [Unknown]

NARRATIVE: CASE EVENT DATE: 20190722
